FAERS Safety Report 11786193 (Version 3)
Quarter: 2017Q3

REPORT INFORMATION
  Report Type: Report from Study
  Country: JP (occurrence: JP)
  Receive Date: 20151130
  Receipt Date: 20170807
  Transmission Date: 20171127
  Serious: Yes (Other)
  Sender: FDA-Public Use
  Company Number: JP-ASTELLAS-2015JP000634

PATIENT
  Age: 42 Year
  Sex: Female

DRUGS (39)
  1. TACROLIMUS. [Suspect]
     Active Substance: TACROLIMUS
     Indication: INTERSTITIAL LUNG DISEASE
     Route: 048
     Dates: start: 20141119, end: 20141130
  2. TACROLIMUS. [Suspect]
     Active Substance: TACROLIMUS
     Indication: DERMATOMYOSITIS
     Route: 048
     Dates: start: 20141201, end: 20141205
  3. TACROLIMUS. [Suspect]
     Active Substance: TACROLIMUS
     Route: 048
     Dates: start: 20150319, end: 20150405
  4. PREDNISOLON                        /00016201/ [Suspect]
     Active Substance: PREDNISOLONE
     Indication: PRODUCT USED FOR UNKNOWN INDICATION
     Route: 048
     Dates: start: 20141122, end: 20141224
  5. LENDORMIN [Concomitant]
     Active Substance: BROTIZOLAM
     Indication: INSOMNIA
     Dosage: 0.25 MG, ONCE DAILY
     Route: 048
     Dates: start: 20141128, end: 20150208
  6. CANDESARTAN                        /01349502/ [Concomitant]
     Active Substance: CANDESARTAN
     Indication: HYPERTENSION
     Route: 048
     Dates: start: 20141205
  7. TACROLIMUS. [Suspect]
     Active Substance: TACROLIMUS
     Route: 048
     Dates: start: 20150101, end: 20150304
  8. TACROLIMUS. [Suspect]
     Active Substance: TACROLIMUS
     Route: 048
     Dates: start: 20150406, end: 20151005
  9. PREDNISOLON                        /00016201/ [Suspect]
     Active Substance: PREDNISOLONE
     Route: 048
     Dates: start: 20150306, end: 20150319
  10. ENDOXAN                            /00021101/ [Concomitant]
     Active Substance: CYCLOPHOSPHAMIDE
     Route: 065
     Dates: start: 20141222, end: 20141222
  11. GLUFAST [Concomitant]
     Active Substance: MITIGLINIDE
     Indication: DIABETES MELLITUS
     Route: 048
     Dates: start: 20141212, end: 20141214
  12. HUMALOG [Concomitant]
     Active Substance: INSULIN LISPRO
     Indication: DIABETES MELLITUS
     Route: 065
     Dates: start: 20141222, end: 20150205
  13. TACROLIMUS. [Suspect]
     Active Substance: TACROLIMUS
     Route: 048
     Dates: start: 20141219, end: 20141231
  14. PREDNISOLON                        /00016201/ [Suspect]
     Active Substance: PREDNISOLONE
     Route: 048
     Dates: start: 20150221, end: 20150305
  15. PREDNISOLON                        /00016201/ [Suspect]
     Active Substance: PREDNISOLONE
     Route: 048
     Dates: start: 20150706, end: 20150907
  16. ENDOXAN                            /00021101/ [Concomitant]
     Active Substance: CYCLOPHOSPHAMIDE
     Indication: INTERSTITIAL LUNG DISEASE
     Route: 065
     Dates: start: 20141119, end: 20141119
  17. ENDOXAN                            /00021101/ [Concomitant]
     Active Substance: CYCLOPHOSPHAMIDE
     Indication: DERMATOMYOSITIS
     Route: 065
     Dates: start: 20141203, end: 20141203
  18. JANUVIA [Concomitant]
     Active Substance: SITAGLIPTIN PHOSPHATE
     Indication: DIABETES MELLITUS
     Route: 048
     Dates: start: 20141210
  19. TRANSAMIN [Concomitant]
     Active Substance: TRANEXAMIC ACID
     Indication: DERMATOMYOSITIS
     Route: 048
     Dates: start: 20141125, end: 20150105
  20. TACROLIMUS. [Suspect]
     Active Substance: TACROLIMUS
     Route: 048
     Dates: start: 20141212, end: 20141218
  21. SOLU-MEDROL [Suspect]
     Active Substance: METHYLPREDNISOLONE SODIUM SUCCINATE
     Indication: INTERSTITIAL LUNG DISEASE
     Route: 065
     Dates: start: 20141222, end: 20141224
  22. NEXIUM [Concomitant]
     Active Substance: ESOMEPRAZOLE MAGNESIUM
     Indication: PROPHYLAXIS
     Route: 048
     Dates: start: 20141119, end: 20141212
  23. ADONA                              /00056903/ [Concomitant]
     Active Substance: CARBAZOCHROME SODIUM SULFONATE
     Indication: DERMATOMYOSITIS
     Route: 048
     Dates: start: 20141125, end: 20150105
  24. TACROLIMUS. [Suspect]
     Active Substance: TACROLIMUS
     Route: 048
     Dates: start: 20141206, end: 20141211
  25. PREDNISOLON                        /00016201/ [Suspect]
     Active Substance: PREDNISOLONE
     Route: 048
     Dates: start: 20150207, end: 20150220
  26. PREDNISOLON                        /00016201/ [Suspect]
     Active Substance: PREDNISOLONE
     Route: 048
     Dates: start: 20150320, end: 20150406
  27. PREDNISOLON                        /00016201/ [Suspect]
     Active Substance: PREDNISOLONE
     Route: 048
     Dates: start: 20150907
  28. TACROLIMUS. [Suspect]
     Active Substance: TACROLIMUS
     Route: 048
     Dates: start: 20151005, end: 20151109
  29. TACROLIMUS. [Suspect]
     Active Substance: TACROLIMUS
     Route: 048
     Dates: start: 20151109
  30. PREDNISOLON                        /00016201/ [Suspect]
     Active Substance: PREDNISOLONE
     Route: 048
     Dates: start: 20141225, end: 20150109
  31. PREDNISOLON                        /00016201/ [Suspect]
     Active Substance: PREDNISOLONE
     Route: 048
     Dates: start: 20150124, end: 20150206
  32. DIFLUCAN [Concomitant]
     Active Substance: FLUCONAZOLE
     Indication: OESOPHAGEAL CANDIDIASIS
     Route: 048
     Dates: start: 20141219, end: 20150109
  33. SUREPOST [Concomitant]
     Active Substance: REPAGLINIDE
     Indication: DIABETES MELLITUS
     Route: 048
     Dates: start: 20141215
  34. TACROLIMUS. [Suspect]
     Active Substance: TACROLIMUS
     Route: 048
     Dates: start: 20150305, end: 20150318
  35. PREDNISOLON                        /00016201/ [Suspect]
     Active Substance: PREDNISOLONE
     Route: 048
     Dates: start: 20150110, end: 20150123
  36. PREDNISOLON                        /00016201/ [Suspect]
     Active Substance: PREDNISOLONE
     Route: 048
     Dates: start: 20150407, end: 20150706
  37. SOLU-MEDROL [Suspect]
     Active Substance: METHYLPREDNISOLONE SODIUM SUCCINATE
     Indication: DERMATOMYOSITIS
     Route: 065
     Dates: start: 20141119, end: 20141121
  38. BONALON [Concomitant]
     Active Substance: ALENDRONATE SODIUM
     Indication: PROPHYLAXIS
     Route: 048
     Dates: start: 20141119
  39. BAKTAR [Concomitant]
     Active Substance: SULFAMETHOXAZOLE\TRIMETHOPRIM
     Indication: PROPHYLAXIS
     Route: 048
     Dates: start: 20141126

REACTIONS (5)
  - Diabetes mellitus [Recovering/Resolving]
  - Tremor [Recovered/Resolved]
  - Oesophageal candidiasis [Recovered/Resolved]
  - Insomnia [Recovering/Resolving]
  - Hypertension [Recovering/Resolving]

NARRATIVE: CASE EVENT DATE: 20141128
